FAERS Safety Report 10920243 (Version 1)
Quarter: 2015Q1

REPORT INFORMATION
  Report Type: Spontaneous
  Country: US (occurrence: None)
  Receive Date: 20150312
  Receipt Date: 20150312
  Transmission Date: 20150721
  Serious: Yes (Other)
  Sender: FDA-Public Use
  Company Number: None

PATIENT
  Age: 91 Year
  Sex: Male

DRUGS (1)
  1. ZYTIGA [Suspect]
     Active Substance: ABIRATERONE ACETATE
     Dosage: 4 TABS
     Route: 048
     Dates: start: 201304, end: 201503

REACTIONS (2)
  - Fatigue [None]
  - Disease progression [None]

NARRATIVE: CASE EVENT DATE: 20150310
